FAERS Safety Report 9796748 (Version 2)
Quarter: 2014Q1

REPORT INFORMATION
  Report Type: Spontaneous
  Country: US (occurrence: US)
  Receive Date: 20140103
  Receipt Date: 20140103
  Transmission Date: 20141002
  Serious: Yes (Hospitalization, Other)
  Sender: FDA-Public Use
  Company Number: US-ASTRAZENECA-2013SE89949

PATIENT
  Age: 450 Month
  Sex: Female
  Weight: 68 kg

DRUGS (2)
  1. SEROQUEL XR [Suspect]
     Route: 048
     Dates: start: 2013
  2. DIOVAN [Concomitant]
     Indication: BLOOD PRESSURE ABNORMAL

REACTIONS (5)
  - Suicidal ideation [Unknown]
  - Insomnia [Unknown]
  - Affective disorder [Unknown]
  - Feeling abnormal [Unknown]
  - Drug ineffective [Unknown]
